FAERS Safety Report 10944748 (Version 1)
Quarter: 2015Q1

REPORT INFORMATION
  Report Type: Spontaneous
  Country: US (occurrence: US)
  Receive Date: 20150323
  Receipt Date: 20150323
  Transmission Date: 20150721
  Serious: Yes (Death, Other)
  Sender: FDA-Public Use
  Company Number: US-ASTRAZENECA-2013SE81647

PATIENT
  Age: 801 Month
  Sex: Male

DRUGS (50)
  1. TOPROL XL [Concomitant]
     Active Substance: METOPROLOL SUCCINATE
     Dates: start: 20061214
  2. MEGACE ES [Concomitant]
     Active Substance: MEGESTROL ACETATE
     Dates: start: 20101220
  3. ZITHROMAX [Concomitant]
     Active Substance: AZITHROMYCIN DIHYDRATE
     Route: 048
     Dates: start: 20110226
  4. REZULIN [Concomitant]
     Active Substance: TROGLITAZONE
     Route: 048
     Dates: start: 19980817
  5. BYETTA [Suspect]
     Active Substance: EXENATIDE
     Indication: TYPE 2 DIABETES MELLITUS
     Route: 065
     Dates: start: 20060120
  6. LASIX [Concomitant]
     Active Substance: FUROSEMIDE
     Route: 048
     Dates: start: 20070817
  7. HUMALOG [Concomitant]
     Active Substance: INSULIN LISPRO
     Dosage: 75/25, 20 UNITS IN THE A.M. AND 6 UNITS IN THE P.M.
     Route: 058
     Dates: start: 20100121
  8. IMODIUM [Concomitant]
     Active Substance: LOPERAMIDE HYDROCHLORIDE
     Route: 048
     Dates: start: 20110226
  9. ROCEPHIN [Concomitant]
     Active Substance: CEFTRIAXONE SODIUM
     Route: 065
     Dates: start: 20110226
  10. INSULIN SYRG [Concomitant]
     Dosage: 0.5/3 GM15
     Route: 065
     Dates: start: 19980817
  11. COUMADIN [Concomitant]
     Active Substance: WARFARIN SODIUM
     Dosage: 5 MG 5 PM
     Route: 048
     Dates: start: 20110226
  12. NASONEX [Concomitant]
     Active Substance: MOMETASONE FUROATE
     Route: 048
     Dates: start: 19980708
  13. AMARYL [Concomitant]
     Active Substance: GLIMEPIRIDE
     Dates: start: 20090310
  14. PRAVACHOL [Concomitant]
     Active Substance: PRAVASTATIN SODIUM
     Dosage: 20 MG 30 T QHS
     Route: 048
     Dates: start: 20041122
  15. GLUCOPHAGE [Concomitant]
     Active Substance: METFORMIN HYDROCHLORIDE
     Route: 048
     Dates: start: 20051231
  16. METOPROLOL [Concomitant]
     Active Substance: METOPROLOL
     Route: 048
     Dates: start: 20071008
  17. ASPIRIN. [Concomitant]
     Active Substance: ASPIRIN
     Route: 048
     Dates: start: 20101109
  18. LOVENOX [Concomitant]
     Active Substance: ENOXAPARIN SODIUM
     Dosage: 60/0,6ML
     Route: 058
     Dates: start: 19981203
  19. NEXIUM [Concomitant]
     Active Substance: ESOMEPRAZOLE MAGNESIUM
     Dosage: 40 MG 4 PM
     Route: 048
     Dates: start: 20110226
  20. BYETTA [Suspect]
     Active Substance: EXENATIDE
     Indication: TYPE 2 DIABETES MELLITUS
     Route: 065
     Dates: start: 20091103
  21. PRAVACHOL [Concomitant]
     Active Substance: PRAVASTATIN SODIUM
     Route: 048
     Dates: start: 20080513
  22. SODIUM CHLORIDE. [Concomitant]
     Active Substance: SODIUM CHLORIDE
     Dosage: 250 ML
     Dates: start: 20110226
  23. GEMFIBROZIL. [Concomitant]
     Active Substance: GEMFIBROZIL
     Route: 048
     Dates: start: 19970514
  24. VICOPROFEN [Concomitant]
     Active Substance: HYDROCODONE BITARTRATE\IBUPROFEN
     Route: 048
     Dates: start: 19980127
  25. PRILOSEC CR [Concomitant]
     Route: 048
     Dates: start: 19981203
  26. AVANDIA [Concomitant]
     Active Substance: ROSIGLITAZONE MALEATE
     Route: 048
     Dates: start: 20000417
  27. PRAVASTATIN [Concomitant]
     Active Substance: PRAVASTATIN\PRAVASTATIN SODIUM
     Route: 048
     Dates: start: 20070913
  28. TRICOR [Concomitant]
     Active Substance: FENOFIBRATE
     Dosage: 160 MG
     Route: 048
     Dates: start: 20041203
  29. GLUCOPHAGE [Concomitant]
     Active Substance: METFORMIN HYDROCHLORIDE
     Route: 048
     Dates: start: 19970414
  30. CLARITIN [Concomitant]
     Active Substance: LORATADINE
     Route: 048
     Dates: start: 20000317
  31. AVANDAMET [Concomitant]
     Active Substance: METFORMIN HYDROCHLORIDE\ROSIGLITAZONE MALEATE
     Dates: start: 20110226
  32. FERROUS SULFATE [Concomitant]
     Active Substance: FERROUS SULFATE\FERROUS SULFATE, DRIED
     Route: 048
     Dates: start: 20101115
  33. QUININE SULFATE. [Concomitant]
     Active Substance: QUININE SULFATE
     Route: 048
     Dates: start: 19980817
  34. PLAVIX [Concomitant]
     Active Substance: CLOPIDOGREL BISULFATE
     Route: 048
     Dates: start: 19981203
  35. POTASSIUM CL [Concomitant]
     Active Substance: POTASSIUM CHLORIDE
     Dates: start: 20070817
  36. GLIMEPIRIDE. [Concomitant]
     Active Substance: GLIMEPIRIDE
     Route: 048
     Dates: start: 20060228
  37. LOVENOX [Concomitant]
     Active Substance: ENOXAPARIN SODIUM
     Route: 058
     Dates: start: 20110226
  38. LIPITOR [Concomitant]
     Active Substance: ATORVASTATIN CALCIUM
     Route: 048
     Dates: start: 19981203
  39. BYETTA [Suspect]
     Active Substance: EXENATIDE
     Indication: TYPE 2 DIABETES MELLITUS
     Route: 065
     Dates: start: 20051202, end: 200611
  40. BYETTA [Suspect]
     Active Substance: EXENATIDE
     Indication: TYPE 2 DIABETES MELLITUS
     Route: 065
     Dates: start: 200801, end: 201001
  41. PLAVIX [Concomitant]
     Active Substance: CLOPIDOGREL BISULFATE
     Route: 048
     Dates: start: 20070817
  42. NIASPAN CR [Concomitant]
     Dosage: 1000 MG PM
     Dates: start: 20090310
  43. NIASPAN CR [Concomitant]
     Dates: start: 20080103
  44. METFORMIN HCL [Concomitant]
     Active Substance: METFORMIN HYDROCHLORIDE
     Dates: start: 20060225
  45. CIPROFLOXACIN HCL [Concomitant]
     Active Substance: CIPROFLOXACIN HYDROCHLORIDE
     Dates: start: 20101112
  46. HYDROCODONE [Concomitant]
     Active Substance: HYDROCODONE
     Dates: start: 20101115
  47. CLARITIN [Concomitant]
     Active Substance: LORATADINE
     Route: 048
     Dates: start: 20101109
  48. FLUCONAZOLE. [Concomitant]
     Active Substance: FLUCONAZOLE
     Dosage: 150 MG ONCE
     Route: 048
     Dates: start: 20110226
  49. LORATADINE. [Concomitant]
     Active Substance: LORATADINE
     Route: 048
     Dates: start: 20101115
  50. GLUCOTROL XL [Concomitant]
     Active Substance: GLIPIZIDE
     Route: 048
     Dates: start: 19970414

REACTIONS (6)
  - Colon cancer [Unknown]
  - Pancreatic carcinoma metastatic [Fatal]
  - Pneumonia [Fatal]
  - Pulmonary embolism [Fatal]
  - Jaundice cholestatic [Unknown]
  - Metastases to liver [Unknown]

NARRATIVE: CASE EVENT DATE: 201010
